FAERS Safety Report 7133294-2 (Version None)
Quarter: 2010Q4

REPORT INFORMATION
  Report Type: 
  Country: None (occurrence: None)
  Receive Date: 20101117
  Receipt Date: 20101110
  Transmission Date: 20110411
  Serious: Yes (Other)
  Sender: FDA-Public Use
  Company Number: TRP_07383_2010

PATIENT
  Age: 53 Year
  Sex: Male
  Weight: 84.369 kg

DRUGS (2)
  1. RIBAVIRIN [Suspect]
     Indication: HEPATITIS C
     Dosage: 500 MG BID ORAL
     Route: 048
  2. PEGINTERFERON ALFA-2A [Suspect]
     Indication: HEPATITIS C
     Dosage: 180 UG 1X/WEEK SUBCUTANEOUS
     Route: 058

REACTIONS (19)
  - ANAEMIA [None]
  - ANXIETY [None]
  - APATHY [None]
  - ARTHRALGIA [None]
  - ASTHENIA [None]
  - DEPRESSION [None]
  - DRY MOUTH [None]
  - DRY SKIN [None]
  - HEADACHE [None]
  - IRRITABILITY [None]
  - LUNG NEOPLASM [None]
  - MYALGIA [None]
  - NASAL CONGESTION [None]
  - NEUTROPENIA [None]
  - PRURITUS [None]
  - RETINAL EXUDATES [None]
  - RETINAL HAEMORRHAGE [None]
  - THROMBOCYTOPENIA [None]
  - WEIGHT DECREASED [None]
